FAERS Safety Report 7365737-3 (Version None)
Quarter: 2011Q1

REPORT INFORMATION
  Report Type: 
  Country: None (occurrence: None)
  Receive Date: 20110322
  Receipt Date: 20110314
  Transmission Date: 20110831
  Serious: Yes (Other)
  Sender: FDA-Public Use
  Company Number: US-PFIZER INC-2011018365

PATIENT
  Sex: Female

DRUGS (1)
  1. GEMTUZUMAB OZOGAMICIN [Suspect]
     Indication: NEOPLASM
     Dosage: UNK

REACTIONS (2)
  - ACUTE MONOCYTIC LEUKAEMIA [None]
  - DISEASE RECURRENCE [None]
